FAERS Safety Report 9420497 (Version 1)
Quarter: 2013Q3

REPORT INFORMATION
  Report Type: Spontaneous
  Country: US (occurrence: US)
  Receive Date: 20130725
  Receipt Date: 20130725
  Transmission Date: 20140515
  Serious: No
  Sender: FDA-Public Use
  Company Number: US-ABBOTT-13P-163-1033531-00

PATIENT
  Age: 64 Year
  Sex: Female

DRUGS (2)
  1. SYNTHROID [Suspect]
     Indication: HYPOTHYROIDISM
     Dates: start: 201211
  2. SYNTHROID [Suspect]
     Dates: start: 2003, end: 201211

REACTIONS (2)
  - Drug dispensing error [Unknown]
  - Therapy change [Unknown]
